FAERS Safety Report 8291514-5 (Version None)
Quarter: 2012Q2

REPORT INFORMATION
  Report Type: 
  Country: None (occurrence: None)
  Receive Date: 20120417
  Receipt Date: 20120413
  Transmission Date: 20120825
  Serious: No
  Sender: FDA-Public Use
  Company Number: US-PFIZER INC-2012092892

PATIENT
  Sex: Male

DRUGS (1)
  1. CLEOCIN HYDROCHLORIDE [Suspect]
     Indication: EAR INFECTION
     Dosage: 150 MG, 2X/DAY
     Route: 048
     Dates: start: 20120401

REACTIONS (1)
  - DRUG INEFFECTIVE [None]
